FAERS Safety Report 8586409-3 (Version None)
Quarter: 2012Q3

REPORT INFORMATION
  Report Type: 
  Country: None (occurrence: None)
  Receive Date: 20120810
  Receipt Date: 20120708
  Transmission Date: 20120928
  Serious: No
  Sender: FDA-Public Use
  Company Number: US-009507513-2011SP051719

PATIENT

DRUGS (1)
  1. PEG-INTRON [Suspect]
     Indication: LEUKAEMIA
     Dosage: 0.5 ML, QW
     Route: 058

REACTIONS (3)
  - MALAISE [None]
  - DRUG DOSE OMISSION [None]
  - OFF LABEL USE [None]
